FAERS Safety Report 25737104 (Version 1)
Quarter: 2025Q3

REPORT INFORMATION
  Report Type: Spontaneous
  Country: JP (occurrence: JP)
  Receive Date: 20250828
  Receipt Date: 20250828
  Transmission Date: 20251021
  Serious: Yes (Other)
  Sender: ELI LILLY AND COMPANY
  Company Number: JP-ELI_LILLY_AND_COMPANY-JP202508022687

PATIENT
  Sex: Female

DRUGS (2)
  1. TRULICITY [Suspect]
     Active Substance: DULAGLUTIDE
     Indication: Diabetes mellitus
     Route: 058
  2. INSULIN NOS [Concomitant]
     Active Substance: INSULIN NOS
     Indication: Diabetes mellitus
     Route: 065

REACTIONS (9)
  - Oropharyngeal pain [Recovering/Resolving]
  - Chest pain [Recovering/Resolving]
  - Dyspnoea [Unknown]
  - Lip dry [Unknown]
  - Rash macular [Not Recovered/Not Resolved]
  - Lip oedema [Unknown]
  - Anaphylactic reaction [Unknown]
  - Gait disturbance [Unknown]
  - Insomnia [Unknown]
